FAERS Safety Report 23591230 (Version 3)
Quarter: 2024Q3

REPORT INFORMATION
  Report Type: Spontaneous
  Country: BG (occurrence: BG)
  Receive Date: 20240304
  Receipt Date: 20240916
  Transmission Date: 20241016
  Serious: Yes (Hospitalization)
  Sender: TEVA
  Company Number: BG-TEVA-VS-3163551

PATIENT
  Age: 72 Year
  Sex: Male

DRUGS (5)
  1. ENALAPRIL [Suspect]
     Active Substance: ENALAPRIL
     Indication: Hypertension
     Dosage: RECEIVED ONCE IN THE MORNING
     Route: 065
     Dates: start: 2008
  2. PIRACETAM [Concomitant]
     Active Substance: PIRACETAM
     Indication: Duodenal ulcer
     Dosage: TIME INTERVAL: 0.33333333 DAYS
     Route: 065
  3. ASPIRIN [Concomitant]
     Active Substance: ASPIRIN
     Indication: Ischaemic stroke
     Dosage: RECEIVED ONCE IN THE EVENING
     Route: 065
  4. VINPOCETINE [Concomitant]
     Active Substance: VINPOCETINE
     Indication: Ischaemic stroke
     Route: 065
  5. FLUPENTIXOL\MELITRACEN [Concomitant]
     Active Substance: FLUPENTIXOL\MELITRACEN
     Indication: Duodenal ulcer
     Dosage: RECEIVED AT 0.5MG/10MG ONCE IN THE MORNING
     Route: 065

REACTIONS (2)
  - Basal cell carcinoma [Recovered/Resolved]
  - Dysplastic naevus [Recovered/Resolved]
